FAERS Safety Report 13830784 (Version 1)
Quarter: 2017Q3

REPORT INFORMATION
  Report Type: Spontaneous
  Country: US (occurrence: US)
  Receive Date: 20170803
  Receipt Date: 20170803
  Transmission Date: 20171127
  Serious: No
  Sender: FDA-Public Use
  Company Number: US-DRREDDYS-USA/USA/17/0089015

PATIENT
  Age: 56 Year
  Sex: Male
  Weight: 79.37 kg

DRUGS (1)
  1. OMEPRAZOLE. [Suspect]
     Active Substance: OMEPRAZOLE
     Indication: DYSPEPSIA
     Route: 048

REACTIONS (3)
  - Product quality issue [Unknown]
  - Therapeutic response unexpected [Unknown]
  - Extra dose administered [Unknown]
